FAERS Safety Report 6176644-6 (Version None)
Quarter: 2009Q2

REPORT INFORMATION
  Report Type: 
  Country: None (occurrence: None)
  Receive Date: 20090501
  Receipt Date: 20081023
  Transmission Date: 20091009
  Serious: Yes (Death, Hospitalization)
  Sender: FDA-Public Use
  Company Number: US-ALEXION-A200800202

PATIENT

DRUGS (20)
  1. SOLIRIS [Suspect]
     Dosage: 600 MG, SINGLE
     Route: 042
     Dates: start: 20080429, end: 20080429
  2. SOLIRIS [Suspect]
     Route: 042
     Dates: start: 20080506, end: 20080520
  3. SOLIRIS [Suspect]
     Dosage: 900 MG, UNK
     Route: 042
     Dates: start: 20080527, end: 20080805
  4. ASPIRIN [Concomitant]
  5. AVAPRO [Concomitant]
  6. SYNTHROID [Concomitant]
  7. DETROL  /01350201/ [Concomitant]
  8. FLUTICASONE [Concomitant]
  9. ISOSORBIDE MONONITRATE [Concomitant]
  10. LEXAPRO [Concomitant]
  11. METOPROLOL TARTRATE [Concomitant]
  12. NOVOLOG [Concomitant]
  13. PREDNISONE [Concomitant]
  14. SENNA-MINT WAF [Concomitant]
  15. SIMVASTATIN [Concomitant]
  16. TRAMADOL HCL [Concomitant]
  17. TRAZODONE HCL [Concomitant]
  18. XANAX [Concomitant]
  19. REGULAR INSULIN [Concomitant]
     Indication: TYPE 1 DIABETES MELLITUS
     Dosage: SLIDING SCALE, PRN
  20. LONG ACTING INSULIN [Concomitant]
     Indication: TYPE 1 DIABETES MELLITUS
     Dosage: QHS

REACTIONS (2)
  - CARDIAC FAILURE CONGESTIVE [None]
  - MYOCARDIAL INFARCTION [None]
